FAERS Safety Report 10357934 (Version 2)
Quarter: 2014Q4

REPORT INFORMATION
  Report Type: Spontaneous
  Country: IN (occurrence: IN)
  Receive Date: 20140801
  Receipt Date: 20141202
  Transmission Date: 20150528
  Serious: Yes (Life-Threatening, Hospitalization, Other)
  Sender: FDA-Public Use
  Company Number: IN-GLAXOSMITHKLINE-B1019777A

PATIENT
  Age: 46 Year
  Sex: Female

DRUGS (1)
  1. SUPACEF [Suspect]
     Active Substance: CEFUROXIME
     Indication: SURGERY
     Dosage: TEST DOSE OF 1.5G
     Route: 065
     Dates: start: 20140726, end: 20140726

REACTIONS (2)
  - Cardiac arrest [Recovering/Resolving]
  - Blood pressure decreased [Recovering/Resolving]

NARRATIVE: CASE EVENT DATE: 20140726
